FAERS Safety Report 14719104 (Version 1)
Quarter: 2018Q2

REPORT INFORMATION
  Report Type: Spontaneous
  Country: IL (occurrence: IL)
  Receive Date: 20180405
  Receipt Date: 20180405
  Transmission Date: 20180711
  Serious: Yes (Hospitalization, Other)
  Sender: FDA-Public Use
  Company Number: IL-BAUSCH-BL-2018-009286

PATIENT
  Age: 69 Year
  Sex: Male

DRUGS (1)
  1. DEXAMETHASONE. [Suspect]
     Active Substance: DEXAMETHASONE
     Indication: DEXAMETHASONE SUPPRESSION TEST
     Dosage: AMBULATORY HIGH DOSE?1-MG OVERNIGHT DEXAMETHASONE
     Route: 065

REACTIONS (1)
  - Phaeochromocytoma crisis [Recovered/Resolved]
